FAERS Safety Report 10155800 (Version 2)
Quarter: 2016Q2

REPORT INFORMATION
  Report Type: Spontaneous
  Country: SE (occurrence: SE)
  Receive Date: 20140506
  Receipt Date: 20160502
  Transmission Date: 20160815
  Serious: Yes (Hospitalization)
  Sender: FDA-Public Use
  Company Number: SE-TEVA-478008ISR

PATIENT
  Age: 74 Year
  Sex: Female

DRUGS (3)
  1. METOPROLOL SANDOZ 25 MG DEPOTTABLETT [Suspect]
     Active Substance: METOPROLOL TARTRATE
     Indication: BLOOD PRESSURE INCREASED
     Dates: start: 20130125, end: 20131031
  2. METOPROLOL RATIOPHARM 25 MG DEPOTTABLETT [Suspect]
     Active Substance: METOPROLOL TARTRATE
     Indication: BLOOD PRESSURE INCREASED
     Dosage: METOPROLOL 25, 1,5 TABLETT
     Dates: start: 20130125, end: 20131031
  3. HYDROCHLOROTHIAZIDE. [Concomitant]
     Active Substance: HYDROCHLOROTHIAZIDE

REACTIONS (6)
  - Headache [Recovered/Resolved]
  - Ear discomfort [Recovered/Resolved]
  - Dizziness [Recovered/Resolved]
  - Loss of consciousness [Recovered/Resolved]
  - Fall [None]
  - Mouth injury [None]

NARRATIVE: CASE EVENT DATE: 201302
